FAERS Safety Report 8427392-0 (Version None)
Quarter: 2012Q2

REPORT INFORMATION
  Report Type: 
  Country: None (occurrence: None)
  Receive Date: 20120323
  Receipt Date: 20110811
  Transmission Date: 20120825
  Serious: Yes (Hospitalization)
  Sender: FDA-Public Use
  Company Number: 163-21880-11021816

PATIENT
  Age: 83 Year
  Sex: Female

DRUGS (5)
  1. COUMADIN [Concomitant]
  2. PREDNISONE TAB [Concomitant]
  3. REVLIMID [Suspect]
     Indication: MULTIPLE MYELOMA
     Dosage: 25 MG, DAILY X 21 DAYS, PO ; 10 MG, DAILY X 21 DAYS, PO ;  5 MG, DAILY X 21 DAYS, PO
     Route: 048
     Dates: start: 20101202
  4. REVLIMID [Suspect]
     Indication: MULTIPLE MYELOMA
     Dosage: 25 MG, DAILY X 21 DAYS, PO ; 10 MG, DAILY X 21 DAYS, PO ;  5 MG, DAILY X 21 DAYS, PO
     Route: 048
     Dates: start: 20100901
  5. REVLIMID [Suspect]
     Indication: MULTIPLE MYELOMA
     Dosage: 25 MG, DAILY X 21 DAYS, PO ; 10 MG, DAILY X 21 DAYS, PO ;  5 MG, DAILY X 21 DAYS, PO
     Route: 048
     Dates: start: 20101015, end: 20100101

REACTIONS (3)
  - PULMONARY EMBOLISM [None]
  - INFECTION [None]
  - DEEP VEIN THROMBOSIS [None]
